FAERS Safety Report 7591997-X (Version None)
Quarter: 2011Q3

REPORT INFORMATION
  Report Type: 
  Country: None (occurrence: None)
  Receive Date: 20110705
  Receipt Date: 20110705
  Transmission Date: 20111222
  Serious: Yes (Hospitalization)
  Sender: FDA-Public Use
  Company Number: None

PATIENT
  Sex: Male
  Weight: 79.92 kg

DRUGS (1)
  1. ERBITUX [Suspect]
     Dosage: 458 MG
     Dates: end: 20110601

REACTIONS (5)
  - FATIGUE [None]
  - INTERSTITIAL LUNG DISEASE [None]
  - HYPOTENSION [None]
  - DYSPNOEA [None]
  - PYREXIA [None]
